FAERS Safety Report 17817939 (Version 2)
Quarter: 2020Q2

REPORT INFORMATION
  Report Type: Spontaneous
  Country: US (occurrence: US)
  Receive Date: 20200522
  Receipt Date: 20200602
  Transmission Date: 20200714
  Serious: Yes (Hospitalization)
  Sender: FDA-Public Use
  Company Number: US-BAYER-2020-086946

PATIENT
  Age: 68 Year
  Sex: Male

DRUGS (2)
  1. PARACETAMOL [Suspect]
     Active Substance: ACETAMINOPHEN
     Dosage: UNK
  2. PARACETAMOL [Suspect]
     Active Substance: ACETAMINOPHEN
     Dosage: UNK

REACTIONS (2)
  - Pyroglutamic acidosis [Recovered/Resolved]
  - Acute kidney injury [Recovered/Resolved]
